FAERS Safety Report 12462353 (Version 1)
Quarter: 2016Q2

REPORT INFORMATION
  Report Type: Spontaneous
  Country: JP (occurrence: JP)
  Receive Date: 20160613
  Receipt Date: 20160613
  Transmission Date: 20160815
  Serious: Yes (Hospitalization)
  Sender: FDA-Public Use
  Company Number: JP-ROCHE-1774355

PATIENT
  Age: 60 Year
  Sex: Female

DRUGS (1)
  1. AVASTIN [Suspect]
     Active Substance: BEVACIZUMAB
     Indication: OVARIAN CANCER
     Dosage: MOST RECENT DOSE ON 30/MAY/2016.
     Route: 041
     Dates: start: 20150602

REACTIONS (1)
  - Tibia fracture [Not Recovered/Not Resolved]

NARRATIVE: CASE EVENT DATE: 20160602
